FAERS Safety Report 15740195 (Version 3)
Quarter: 2019Q1

REPORT INFORMATION
  Report Type: Spontaneous
  Country: US (occurrence: US)
  Receive Date: 20181219
  Receipt Date: 20190111
  Transmission Date: 20190417
  Serious: No
  Sender: FDA-Public Use
  Company Number: US-BAYER-2018-233165

PATIENT

DRUGS (1)
  1. ESTRADIOL. [Suspect]
     Active Substance: ESTRADIOL
     Dosage: UNK
     Route: 062

REACTIONS (6)
  - Fatigue [None]
  - Headache [None]
  - Breast disorder [None]
  - Product adhesion issue [None]
  - Blood oestrogen decreased [None]
  - Emotional disorder [None]
